APPROVED DRUG PRODUCT: MICONAZOLE 7 COMBINATION PACK
Active Ingredient: MICONAZOLE NITRATE
Strength: 2%,100MG
Dosage Form/Route: CREAM, SUPPOSITORY;TOPICAL, VAGINAL
Application: A076585 | Product #001
Applicant: COSETTE PHARMACEUTICALS INC
Approved: Mar 26, 2004 | RLD: No | RS: No | Type: DISCN